FAERS Safety Report 4758755-2 (Version None)
Quarter: 2005Q3

REPORT INFORMATION
  Report Type: 
  Country: None (occurrence: None)
  Receive Date: 20050831
  Receipt Date: 20050831
  Transmission Date: 20060218
  Serious: Yes (Death, Hospitalization)
  Sender: FDA-Public Use
  Company Number: None

PATIENT
  Sex: Female
  Weight: 66 kg

DRUGS (2)
  1. ARA C [Suspect]
     Indication: ACUTE MYELOID LEUKAEMIA
     Dates: start: 20050719, end: 20050722
  2. GEMTUZUMAB OZOGAMICIN [Suspect]
     Dates: start: 20050725, end: 20050725

REACTIONS (20)
  - BACTERIAL INFECTION [None]
  - BLOOD CULTURE POSITIVE [None]
  - BONE MARROW DEPRESSION [None]
  - BRADYCARDIA [None]
  - CARDIAC ARREST [None]
  - CARDIOVASCULAR DISORDER [None]
  - CHILLS [None]
  - COUGH [None]
  - DYSPNOEA [None]
  - GENERAL PHYSICAL HEALTH DETERIORATION [None]
  - HYPERKALAEMIA [None]
  - HYPOXIA [None]
  - KLEBSIELLA INFECTION [None]
  - NEUTROPHIL COUNT DECREASED [None]
  - PNEUMOCYSTIS JIROVECI PNEUMONIA [None]
  - PYREXIA [None]
  - RESPIRATORY DISTRESS [None]
  - SPUTUM ABNORMAL [None]
  - SUBCUTANEOUS EMPHYSEMA [None]
  - TENDERNESS [None]
